FAERS Safety Report 4374278-7 (Version None)
Quarter: 2004Q2

REPORT INFORMATION
  Report Type: 
  Country: None (occurrence: None)
  Receive Date: 20040609
  Receipt Date: 20040528
  Transmission Date: 20050107
  Serious: Yes (Hospitalization, Other)
  Sender: FDA-Public Use
  Company Number: US-JNJFOC-20040101172

PATIENT
  Sex: Female

DRUGS (2)
  1. ORTHO EVRA [Suspect]
     Indication: CONTRACEPTION
     Route: 062
  2. ORAL CONTRACEPTIVE NOS [Suspect]
     Indication: CONTRACEPTION
     Route: 049

REACTIONS (2)
  - BENIGN ANORECTAL NEOPLASM [None]
  - DESMOID TUMOUR [None]
